FAERS Safety Report 8151125 (Version 2)
Quarter: 2013Q1

REPORT INFORMATION
  Report Type: Spontaneous
  Country: US (occurrence: US)
  Receive Date: 20110922
  Receipt Date: 20130116
  Transmission Date: 20140127
  Serious: No
  Sender: FDA-Public Use
  Company Number: US-ASTRAZENECA-2011SE09458

PATIENT
  Age: 64 Year
  Sex: Female

DRUGS (2)
  1. SEROQUEL [Suspect]
     Route: 048
     Dates: start: 2008
  2. RISPERIDONE [Concomitant]

REACTIONS (8)
  - Crying [Unknown]
  - Insomnia [Unknown]
  - Pain [Unknown]
  - Depression [Unknown]
  - Bipolar disorder [Unknown]
  - Fatigue [Unknown]
  - Somnolence [Unknown]
  - Intentional drug misuse [Unknown]
